FAERS Safety Report 5684847-X (Version None)
Quarter: 2008Q1

REPORT INFORMATION
  Report Type: 
  Country: None (occurrence: None)
  Receive Date: 20080328
  Receipt Date: 19900402
  Transmission Date: 20080703
  Serious: Yes (Death)
  Sender: FDA-Public Use
  Company Number: BR-ROCHE-13433

PATIENT
  Age: 23 Year
  Sex: Male

DRUGS (3)
  1. GANCICLOVIR SODIUM [Suspect]
     Route: 065
     Dates: start: 19891115, end: 19891130
  2. KETOCONAZOLE [Concomitant]
  3. BACTRIM [Concomitant]

REACTIONS (1)
  - DEATH [None]
